FAERS Safety Report 18080304 (Version 1)
Quarter: 2020Q3

REPORT INFORMATION
  Report Type: Spontaneous
  Country: GB (occurrence: GB)
  Receive Date: 20200728
  Receipt Date: 20200728
  Transmission Date: 20201103
  Serious: Yes (Hospitalization)
  Sender: FDA-Public Use
  Company Number: GB-BAYER-2020-146448

PATIENT
  Sex: Male

DRUGS (1)
  1. AVELOX [Suspect]
     Active Substance: MOXIFLOXACIN HYDROCHLORIDE
     Indication: MYCOPLASMA GENITALIUM INFECTION
     Dosage: 400 MG, QD
     Route: 048

REACTIONS (3)
  - Headache [Unknown]
  - Meningitis aseptic [Recovered/Resolved]
  - Pyrexia [Unknown]
